FAERS Safety Report 13029948 (Version 5)
Quarter: 2017Q3

REPORT INFORMATION
  Report Type: Report from Study
  Country: CA (occurrence: CA)
  Receive Date: 20161215
  Receipt Date: 20170808
  Transmission Date: 20171127
  Serious: Yes (Other)
  Sender: FDA-Public Use
  Company Number: CA-ROCHE-1406454

PATIENT
  Age: 25 Year
  Sex: Female
  Weight: 70 kg

DRUGS (6)
  1. CIPROLEX [Concomitant]
     Active Substance: CIPROFLOXACIN HYDROCHLORIDE
  2. ACTEMRA [Suspect]
     Active Substance: TOCILIZUMAB
     Indication: STILL^S DISEASE
     Dosage: EVERY OTHER WEEK
     Route: 058
     Dates: start: 20161216, end: 20170421
  3. NAPROXEN. [Concomitant]
     Active Substance: NAPROXEN
  4. ACTEMRA [Suspect]
     Active Substance: TOCILIZUMAB
     Dosage: ON HOLD
     Route: 042
     Dates: start: 20170519
  5. ACTEMRA [Suspect]
     Active Substance: TOCILIZUMAB
     Indication: STILL^S DISEASE
     Dosage: 8 MG/KG?12/FEB/2015: DOSE
     Route: 042
     Dates: start: 20120815
  6. ACTEMRA [Suspect]
     Active Substance: TOCILIZUMAB
     Dosage: 4 MG/KG
     Route: 042
     Dates: start: 20150730, end: 20161103

REACTIONS (12)
  - Malaise [Unknown]
  - Injection site reaction [Not Recovered/Not Resolved]
  - Infection [Recovered/Resolved]
  - Rheumatoid arthritis [Not Recovered/Not Resolved]
  - Weight decreased [Not Recovered/Not Resolved]
  - Axillary mass [Unknown]
  - Nasopharyngitis [Not Recovered/Not Resolved]
  - Pain in jaw [Unknown]
  - Malaise [Unknown]
  - Influenza [Unknown]
  - Neck pain [Unknown]
  - Lung infection [Recovering/Resolving]

NARRATIVE: CASE EVENT DATE: 201404
